FAERS Safety Report 7926261-X (Version None)
Quarter: 2011Q4

REPORT INFORMATION
  Report Type: 
  Country: None (occurrence: None)
  Receive Date: 20111118
  Receipt Date: 20111114
  Transmission Date: 20120403
  Serious: Yes (Hospitalization)
  Sender: FDA-Public Use
  Company Number: US-BIOGENIDEC-2011BI033921

PATIENT
  Age: 0 Day
  Sex: Male

DRUGS (1)
  1. AVONEX [Suspect]
     Indication: MATERNAL EXPOSURE TIMING UNSPECIFIED
     Route: 064
     Dates: start: 19970101, end: 19980101

REACTIONS (3)
  - MATERNAL DRUGS AFFECTING FOETUS [None]
  - TRANSIENT TACHYPNOEA OF THE NEWBORN [None]
  - PREMATURE BABY [None]
